FAERS Safety Report 12387815 (Version 2)
Quarter: 2016Q3

REPORT INFORMATION
  Report Type: Spontaneous
  Country: US (occurrence: US)
  Receive Date: 20160520
  Receipt Date: 20160727
  Transmission Date: 20161109
  Serious: No
  Sender: FDA-Public Use
  Company Number: US-ALEXION-A201603574

PATIENT
  Sex: Male

DRUGS (1)
  1. STRENSIQ [Suspect]
     Active Substance: ASFOTASE ALFA
     Indication: HYPOPHOSPHATASIA
     Dosage: UNK, SIX TIMES A WEEK
     Route: 058

REACTIONS (3)
  - Pain in extremity [Unknown]
  - Stress fracture [Recovering/Resolving]
  - Onychoclasis [Unknown]
